FAERS Safety Report 11896705 (Version 3)
Quarter: 2016Q1

REPORT INFORMATION
  Report Type: Spontaneous
  Country: US (occurrence: US)
  Receive Date: 20160107
  Receipt Date: 20160201
  Transmission Date: 20160526
  Serious: Yes (Other)
  Sender: FDA-Public Use
  Company Number: US-PFIZER INC-2016001004

PATIENT
  Age: 64 Year
  Sex: Female
  Weight: 127 kg

DRUGS (27)
  1. LYRICA [Suspect]
     Active Substance: PREGABALIN
     Indication: FIBROMYALGIA
  2. CYMBALTA [Concomitant]
     Active Substance: DULOXETINE HYDROCHLORIDE
     Indication: CENTRAL PAIN SYNDROME
  3. ALLOPURINOL. [Concomitant]
     Active Substance: ALLOPURINOL
     Indication: GOUT
     Dosage: 300 MG, 1X/DAY
     Route: 048
  4. BYDUREON [Concomitant]
     Active Substance: EXENATIDE
     Dosage: 2 MG SUSPENSION
     Route: 048
  5. HUMIRA [Concomitant]
     Active Substance: ADALIMUMAB
     Dosage: 40 MG SQ Q WEEKLY (40 MG/ 0.8 ML, PNKT)
     Route: 058
     Dates: start: 201411
  6. ASTELIN [Concomitant]
     Active Substance: AZELASTINE HYDROCHLORIDE
     Dosage: 137 MCG/ SPRAY SOLN
     Route: 048
  7. FLEXERIL [Concomitant]
     Active Substance: CYCLOBENZAPRINE HYDROCHLORIDE
     Dosage: 10 MG, UNK
     Route: 048
  8. OMEPRAZOLE. [Concomitant]
     Active Substance: OMEPRAZOLE
     Dosage: 20 MG CPDR
     Route: 048
  9. HYDROCODONE BITARTRATE AND ACETAMINOPHEN [Concomitant]
     Active Substance: ACETAMINOPHEN\HYDROCODONE BITARTRATE
     Indication: RHEUMATOID ARTHRITIS
     Dosage: 5- 325 MG TABLET 1- 2 ORAL EVERY 4 HOURS AS NEEDED
     Route: 048
  10. LISINOPRIL AND HYDROCHLOROTHIAZIDE [Concomitant]
     Active Substance: HYDROCHLOROTHIAZIDE\LISINOPRIL
     Dosage: 10- 12.5 MG TABS
     Route: 048
  11. LYRICA [Suspect]
     Active Substance: PREGABALIN
     Indication: MYOSITIS
  12. HYDROCODONE BITARTRATE AND ACETAMINOPHEN [Concomitant]
     Active Substance: ACETAMINOPHEN\HYDROCODONE BITARTRATE
     Indication: PAIN
  13. ESTER-C [Concomitant]
     Active Substance: CALCIUM\VITAMINS
     Dosage: 500-60 MG
     Route: 048
  14. GNP POTASSIUM [Concomitant]
     Dosage: 99 MG, UNK
     Route: 048
  15. HYDROXYCHLOROQUINE SULFATE. [Concomitant]
     Active Substance: HYDROXYCHLOROQUINE SULFATE
     Indication: RHEUMATOID ARTHRITIS
     Dosage: 200 MG, 2X/DAY
     Route: 048
  16. ALENDRONATE SODIUM. [Concomitant]
     Active Substance: ALENDRONATE SODIUM
     Indication: SENILE OSTEOPOROSIS
     Dosage: 70 MG, AS NEEDED (QW 28 DAYS, P, ONCE A WEEK 28 DAYS, PRESCRIBED AS NEEDED, MOUTH WEEKLY)
     Route: 048
  17. METFORMIN HCL [Concomitant]
     Active Substance: METFORMIN HYDROCHLORIDE
     Dosage: 500 MG, UNK
     Route: 048
  18. LYRICA [Suspect]
     Active Substance: PREGABALIN
     Indication: CENTRAL PAIN SYNDROME
  19. ALENDRONATE SODIUM. [Concomitant]
     Active Substance: ALENDRONATE SODIUM
     Dosage: 70 MG, WEEKLY
     Route: 048
  20. LYRICA [Suspect]
     Active Substance: PREGABALIN
     Indication: MYALGIA
     Dosage: 150 MG, 2X/DAY
     Route: 048
  21. CYMBALTA [Concomitant]
     Active Substance: DULOXETINE HYDROCHLORIDE
     Indication: FIBROMYALGIA
     Dosage: 60 MG, 1X/DAY
     Route: 048
  22. NASONEX [Concomitant]
     Active Substance: MOMETASONE FUROATE
     Dosage: 50 MCG/ ACT, SUSP
     Route: 048
  23. PRAVASTATIN SODIUM. [Concomitant]
     Active Substance: PRAVASTATIN SODIUM
     Dosage: 10 MG, UNK
     Route: 048
  24. COLESTIPOL HCL [Concomitant]
     Active Substance: COLESTIPOL HYDROCHLORIDE
     Dosage: 1 G, UNK
     Route: 048
  25. VITAMIN D [Concomitant]
     Active Substance: CHOLECALCIFEROL
     Dosage: 1000 IU, DAILY
  26. IBUPROFEN. [Concomitant]
     Active Substance: IBUPROFEN
     Indication: GOUT
     Dosage: 600 MG, 3X/DAY (1 QD 30 DAYS, 2)
     Route: 048
  27. TRAZODONE HYDROCHLORIDE. [Concomitant]
     Active Substance: TRAZODONE HYDROCHLORIDE
     Dosage: 50 MG, UNK
     Route: 048

REACTIONS (15)
  - Osteoporosis [Unknown]
  - Joint dislocation [Unknown]
  - Musculoskeletal stiffness [Unknown]
  - Fatigue [Unknown]
  - Skin disorder [Unknown]
  - Musculoskeletal pain [Unknown]
  - Rosacea [Unknown]
  - Joint swelling [Unknown]
  - Anxiety [Unknown]
  - Pain [Unknown]
  - Joint range of motion decreased [Unknown]
  - Neck pain [Unknown]
  - Osteoporotic fracture [Unknown]
  - Disorientation [Unknown]
  - Arthralgia [Unknown]
